FAERS Safety Report 4800073-8 (Version None)
Quarter: 2005Q4

REPORT INFORMATION
  Report Type: 
  Country: None (occurrence: None)
  Receive Date: 20051012
  Receipt Date: 20051012
  Transmission Date: 20060501
  Serious: No
  Sender: FDA-Public Use
  Company Number: None

PATIENT
  Sex: Female
  Weight: 79.3795 kg

DRUGS (2)
  1. PROPOFOL [Suspect]
     Indication: ENDOSCOPY
     Dosage: 400MG IV
     Route: 042
     Dates: start: 20050803
  2. PROPOFOL [Suspect]
     Indication: GASTROOESOPHAGEAL REFLUX DISEASE
     Dosage: 400MG IV
     Route: 042
     Dates: start: 20050803

REACTIONS (4)
  - ABNORMAL BEHAVIOUR [None]
  - AGGRESSION [None]
  - ANAESTHETIC COMPLICATION [None]
  - DRUG INEFFECTIVE [None]
